FAERS Safety Report 6404901-4 (Version None)
Quarter: 2009Q4

REPORT INFORMATION
  Report Type: 
  Country: None (occurrence: None)
  Receive Date: 20091019
  Receipt Date: 20091013
  Transmission Date: 20100525
  Serious: Yes (Other)
  Sender: FDA-Public Use
  Company Number: DE-JNJFOC-20091002579

PATIENT
  Age: 51 Year
  Sex: Male

DRUGS (3)
  1. INFLIXIMAB [Suspect]
     Indication: PSORIASIS
     Dosage: WEEKS 0,2,6 AND 14 RESPECTIVELY, SHORT INFUSIONS, THEN 6 INFUSIONS AT 8 WEEK INTERVALS (450 MG)
     Route: 042
     Dates: start: 20051001
  2. HUMIRA [Suspect]
     Indication: PSORIASIS
     Route: 058
     Dates: start: 20070101
  3. ETANERCEPT [Suspect]
     Indication: PSORIASIS

REACTIONS (3)
  - MALIGNANT MELANOMA [None]
  - PSORIASIS [None]
  - THERAPEUTIC RESPONSE DECREASED [None]
